FAERS Safety Report 7416365-2 (Version None)
Quarter: 2011Q2

REPORT INFORMATION
  Report Type: 
  Country: None (occurrence: None)
  Receive Date: 20110414
  Receipt Date: 20110404
  Transmission Date: 20111010
  Serious: Yes (Death, Hospitalization)
  Sender: FDA-Public Use
  Company Number: GB-GENENTECH-316395

PATIENT
  Age: 51 Year
  Sex: Female
  Weight: 50 kg

DRUGS (5)
  1. RITUXIMAB [Suspect]
     Indication: B-CELL LYMPHOMA
     Dosage: UNK
     Route: 065
     Dates: start: 20100801, end: 20101220
  2. MIDAZOLAM [Concomitant]
     Indication: PRODUCT USED FOR UNKNOWN INDICATION
     Dosage: UNK
  3. MORPHINE [Concomitant]
     Indication: PRODUCT USED FOR UNKNOWN INDICATION
     Dosage: UNK
  4. BENDAMUSTINE [Suspect]
     Indication: B-CELL LYMPHOMA
     Dosage: UNK
     Route: 065
     Dates: start: 20100801, end: 20101220
  5. SILDENAFIL CITRATE [Suspect]
     Indication: PULMONARY FIBROSIS
     Dosage: 10 MG, UNK
     Route: 042
     Dates: start: 20110211, end: 20110214

REACTIONS (3)
  - PULMONARY FIBROSIS [None]
  - PULMONARY HYPERTENSION [None]
  - HYPOTENSION [None]
